FAERS Safety Report 21884756 (Version 1)
Quarter: 2023Q1

REPORT INFORMATION
  Report Type: Report from Study
  Country: MX (occurrence: MX)
  Receive Date: 20230119
  Receipt Date: 20230119
  Transmission Date: 20230417
  Serious: Yes (Hospitalization)
  Sender: FDA-Public Use
  Company Number: MX-Merck Healthcare KGaA-9376868

PATIENT
  Age: 69 Year
  Sex: Male

DRUGS (7)
  1. CETUXIMAB [Suspect]
     Active Substance: CETUXIMAB
     Indication: Colorectal cancer metastatic
     Dosage: 460 MG, WEEKLY (1/W)
     Route: 065
     Dates: start: 20220503
  2. CAPECITABINE [Concomitant]
     Active Substance: CAPECITABINE
     Indication: Colorectal cancer metastatic
     Dosage: UNK UNK, OTHER (PILL 3 IN THE MORNING AND 3 AT NIGHT, FOR 14 DAYS AND RESTS FOR A WEEK)
     Route: 048
  3. METOPROLOL [Concomitant]
     Active Substance: METOPROLOL
     Indication: Hypertension
     Dosage: UNK, DAILY (HALF A PILL DAILY)
     Route: 065
  4. LOSARTAN [Concomitant]
     Active Substance: LOSARTAN
     Indication: Product used for unknown indication
     Dosage: 1 DOSAGE FORM, DAILY (ONE PILL)
     Route: 065
  5. PREGABALIN [Concomitant]
     Active Substance: PREGABALIN
     Indication: Product used for unknown indication
     Dosage: UNK, DAILY (ONE AT NIGHT EVERY 24 HRS)
     Route: 065
  6. COMENTER [MIRTAZAPINE] [Concomitant]
     Indication: Depression
     Dosage: 7.5 MG, UNKNOWN
     Route: 065
  7. POTASSIUM [Concomitant]
     Active Substance: POTASSIUM
     Indication: Product used for unknown indication
     Dosage: UNK, OTHER (SALTS ONE PILL EVERY 12 HRS)
     Route: 065

REACTIONS (6)
  - Peripheral swelling [Unknown]
  - Tumour excision [Recovering/Resolving]
  - Decreased appetite [Unknown]
  - Vomiting [Not Recovered/Not Resolved]
  - Asthenia [Unknown]
  - Off label use [Unknown]

NARRATIVE: CASE EVENT DATE: 20221220
